FAERS Safety Report 19330335 (Version 2)
Quarter: 2021Q2

REPORT INFORMATION
  Report Type: Report from Study
  Country: US (occurrence: US)
  Receive Date: 20210528
  Receipt Date: 20210607
  Transmission Date: 20210717
  Serious: Yes (Other)
  Sender: FDA-Public Use
  Company Number: US-MYLANLABS-2021M1030872

PATIENT
  Sex: Female
  Weight: 88 kg

DRUGS (1)
  1. GLATIRAMER ACETATE INJECTION [Suspect]
     Active Substance: GLATIRAMER ACETATE
     Indication: MULTIPLE SCLEROSIS
     Dosage: 40 MILLIGRAM,3XWEEKLY
     Route: 058

REACTIONS (8)
  - Loss of consciousness [Unknown]
  - Cold sweat [Unknown]
  - Nausea [Recovering/Resolving]
  - Hyperhidrosis [Unknown]
  - Injection site erythema [Recovering/Resolving]
  - Injection site pain [Recovering/Resolving]
  - Hypersensitivity [Unknown]
  - Injection site bruising [Recovering/Resolving]
